FAERS Safety Report 6410904-6 (Version None)
Quarter: 2009Q4

REPORT INFORMATION
  Report Type: 
  Country: None (occurrence: None)
  Receive Date: 20091022
  Receipt Date: 20091007
  Transmission Date: 20100525
  Serious: Yes (Hospitalization)
  Sender: FDA-Public Use
  Company Number: CZ-GENENTECH-292261

PATIENT
  Sex: Female

DRUGS (3)
  1. BEVACIZUMAB [Suspect]
     Indication: COLORECTAL CANCER
     Dosage: 370 G, Q3W
     Route: 065
     Dates: start: 20090911, end: 20091002
  2. CAPECITABINE [Suspect]
     Indication: COLORECTAL CANCER
     Dosage: UNK
     Route: 065
     Dates: start: 20090911, end: 20091002
  3. OXALIPLATIN [Suspect]
     Indication: COLORECTAL CANCER
     Dosage: UNK
     Route: 065
     Dates: start: 20090911, end: 20091002

REACTIONS (1)
  - HYPERSENSITIVITY [None]
